FAERS Safety Report 9522944 (Version 1)
Quarter: 2013Q1

REPORT INFORMATION
  Report Type: Spontaneous
  Country: US (occurrence: None)
  Receive Date: 20130305
  Receipt Date: 20130305
  Transmission Date: 20140127
  Serious: Yes (Other)
  Sender: FDA-Public Use
  Company Number: 163-21880-12031216

PATIENT
  Age: 74 Year
  Sex: Male

DRUGS (3)
  1. REVLIMID [Suspect]
     Indication: MYELOFIBROSIS
     Dates: start: 20120104, end: 201202
  2. COUMADIN (WARFARIN SODIUM) [Concomitant]
  3. PREDNISONE (PREDNISONE) [Concomitant]
     Dates: start: 20120104, end: 201202

REACTIONS (1)
  - Pancytopenia [None]
